FAERS Safety Report 24096349 (Version 2)
Quarter: 2024Q4

REPORT INFORMATION
  Report Type: Spontaneous
  Country: JP (occurrence: JP)
  Receive Date: 20240716
  Receipt Date: 20241015
  Transmission Date: 20250114
  Serious: Yes (Death, Other)
  Sender: MERCK
  Company Number: JP-MSD-M2024-06631

PATIENT
  Age: 8 Decade
  Sex: Female

DRUGS (2)
  1. KEYTRUDA [Suspect]
     Active Substance: PEMBROLIZUMAB
     Indication: Small intestine carcinoma
     Dosage: UNK
     Route: 041
     Dates: start: 202201, end: 2022
  2. KEYTRUDA [Suspect]
     Active Substance: PEMBROLIZUMAB
     Indication: Microsatellite instability cancer
     Dosage: 200 MILLIGRAM, Q3W
     Route: 041
     Dates: start: 202401, end: 2024

REACTIONS (6)
  - Malignant neoplasm progression [Fatal]
  - Hepatorenal syndrome [Fatal]
  - Lymphoma [Not Recovered/Not Resolved]
  - Lymphadenopathy [Recovering/Resolving]
  - Coagulopathy [Not Recovered/Not Resolved]
  - Hypophosphataemia [Recovering/Resolving]

NARRATIVE: CASE EVENT DATE: 20220801
